FAERS Safety Report 4507964-6 (Version None)
Quarter: 2004Q4

REPORT INFORMATION
  Report Type: 
  Country: None (occurrence: None)
  Receive Date: 20041122
  Receipt Date: 20041122
  Transmission Date: 20050328
  Serious: No
  Sender: FDA-Public Use
  Company Number: None

PATIENT
  Age: 53 Year
  Sex: Male
  Weight: 86 kg

DRUGS (1)
  1. AMITRIPTYLLINE 25 MG GENERIC [Suspect]
     Indication: HEADACHE
     Dosage: 25 MG PO HS
     Route: 048
     Dates: start: 20040725, end: 20040928

REACTIONS (1)
  - ERECTILE DYSFUNCTION [None]
